FAERS Safety Report 12667573 (Version 1)
Quarter: 2016Q3

REPORT INFORMATION
  Report Type: Spontaneous
  Country: JP (occurrence: JP)
  Receive Date: 20160819
  Receipt Date: 20160819
  Transmission Date: 20161109
  Serious: Yes (Other)
  Sender: FDA-Public Use
  Company Number: JP-PERRIGO-16JP018966

PATIENT
  Age: 17 Year
  Sex: Male

DRUGS (1)
  1. MESALAZINE [Suspect]
     Active Substance: MESALAMINE
     Indication: COLITIS ULCERATIVE
     Dosage: 2250 MG/DAY
     Route: 065
     Dates: start: 2000, end: 2008

REACTIONS (4)
  - Rectal cancer [Recovered/Resolved]
  - Rectal stenosis [Unknown]
  - Dysplasia [Unknown]
  - Nephrotic syndrome [Recovered/Resolved]

NARRATIVE: CASE EVENT DATE: 200506
